FAERS Safety Report 24572667 (Version 1)
Quarter: 2024Q4

REPORT INFORMATION
  Report Type: Spontaneous
  Country: US (occurrence: US)
  Receive Date: 20241101
  Receipt Date: 20241101
  Transmission Date: 20250115
  Serious: No
  Sender: Tarsus Pharmaceuticals
  Company Number: US-TARSUS PHARMACEUTICALS-TSP-US-2024-000415

PATIENT
  Age: 79 Year
  Sex: Female

DRUGS (1)
  1. XDEMVY [Suspect]
     Active Substance: LOTILANER
     Indication: Demodex blepharitis
     Dosage: 1 DROP, BID
     Route: 047
     Dates: start: 20240731, end: 20240821

REACTIONS (6)
  - Condition aggravated [Unknown]
  - Eye discharge [Unknown]
  - Eyelids pruritus [Not Recovered/Not Resolved]
  - Eyelid exfoliation [Unknown]
  - Ocular discomfort [Unknown]
  - Drug ineffective [Unknown]

NARRATIVE: CASE EVENT DATE: 20240101
